FAERS Safety Report 8815404 (Version 2)
Quarter: 2012Q4

REPORT INFORMATION
  Report Type: Report from Study
  Country: US (occurrence: US)
  Receive Date: 20120928
  Receipt Date: 20121012
  Transmission Date: 20130627
  Serious: Yes (Hospitalization)
  Sender: FDA-Public Use
  Company Number: US-EISAI INC-E7389-02329-CLI-US

PATIENT
  Age: 57 Year
  Sex: Female
  Weight: 90 kg

DRUGS (29)
  1. E7389 (BOLD) [Suspect]
     Indication: SARCOMA
     Route: 041
     Dates: start: 20120222, end: 20120328
  2. KYTRIL [Concomitant]
     Route: 065
  3. DECADRON [Concomitant]
  4. BENADRYL [Concomitant]
     Dates: start: 20120229
  5. CLARITIN [Concomitant]
     Route: 065
  6. PREDNISOLONE [Concomitant]
     Route: 065
  7. COUMADIN [Concomitant]
     Route: 065
  8. PROTONIX [Concomitant]
     Dates: start: 201106
  9. METOPROLOL [Concomitant]
     Dates: start: 201103
  10. HYDROCODONE [Concomitant]
     Dates: start: 201105
  11. SENOKOT [Concomitant]
     Dates: start: 201103
  12. COLACE [Concomitant]
     Dates: start: 201103
  13. B COMPLEX [Concomitant]
     Indication: NUTRITIONAL SUPPLEMENT
     Dates: start: 2011
  14. VITAMIN D3 [Concomitant]
     Indication: NUTRITIONAL SUPPLEMENT
     Dates: start: 2011
  15. IMMPOWER [Concomitant]
     Indication: NUTRITIONAL SUPPLEMENT
     Dates: start: 2011
  16. NEUPOGEN [Concomitant]
     Indication: NEUTROPENIA
     Dates: start: 20120313, end: 20120313
  17. PROCRIT [Concomitant]
     Dates: start: 20120404, end: 20120404
  18. SLOW FE [Concomitant]
     Indication: IRON SUPPLEMENTATION
     Dates: start: 20120404
  19. CIPRO [Concomitant]
     Indication: IRON SUPPLEMENTATION
     Dates: start: 20120404, end: 20120411
  20. ZOFRAN [Concomitant]
     Indication: PROPHYLAXIS OF NAUSEA AND VOMITING
     Dates: start: 20120411, end: 20120411
  21. DECADRON [Concomitant]
     Indication: PROPHYLAXIS OF NAUSEA AND VOMITING
     Dates: start: 20120411, end: 20120411
  22. RANITIDINE [Concomitant]
     Indication: GASTROESOPHAGEAL REFLUX PROPHYLAXIS
     Dates: start: 20120411, end: 20120413
  23. POTASSIUM PHOSPHATE [Concomitant]
     Indication: ELECTROLYTE REPLACEMENT
     Dates: start: 20120411, end: 20120413
  24. MAGNESIUM SULFATE [Concomitant]
     Indication: ELECTROLYTE REPLACEMENT
     Dates: start: 20120411, end: 20120413
  25. IFOSFAMIDE [Concomitant]
     Indication: LEIOMYOSARCOMA
     Dates: start: 20120411, end: 20120413
  26. MESNA [Concomitant]
     Indication: PROPHYLAXIS
     Dates: start: 20120411, end: 20120413
  27. PACKED RED BLOOD CELLS [Concomitant]
     Dates: start: 20120411, end: 20120411
  28. TYLENOL [Concomitant]
     Indication: PREMEDICATION
     Dates: start: 20120411, end: 20120411
  29. DILAUDID [Concomitant]
     Dates: start: 20120412

REACTIONS (3)
  - International normalised ratio increased [Recovered/Resolved]
  - Asthenia [Recovered/Resolved]
  - Neutropenia [Recovered/Resolved]
